FAERS Safety Report 17286447 (Version 1)
Quarter: 2020Q1

REPORT INFORMATION
  Report Type: Spontaneous
  Country: US (occurrence: US)
  Receive Date: 20200119
  Receipt Date: 20200119
  Transmission Date: 20200409
  Serious: No
  Sender: FDA-Public Use
  Company Number: US-DEXPHARM-20190600

PATIENT
  Sex: Male

DRUGS (2)
  1. OMEPRAZOLE DELAYED RELEASE TABLETS 20 MG [Suspect]
     Active Substance: OMEPRAZOLE
     Indication: DYSPEPSIA
     Dosage: DAILY DOSE: 20 MG MILLGRAM(S) EVERY DAYS
     Route: 048
     Dates: start: 20190728, end: 20190730
  2. TYLENOL [Concomitant]
     Active Substance: ACETAMINOPHEN
     Indication: HEADACHE
     Route: 065

REACTIONS (1)
  - Nausea [Not Recovered/Not Resolved]

NARRATIVE: CASE EVENT DATE: 20190728
